FAERS Safety Report 11231999 (Version 3)
Quarter: 2015Q3

REPORT INFORMATION
  Report Type: Spontaneous
  Country: JP (occurrence: JP)
  Receive Date: 20150701
  Receipt Date: 20150910
  Transmission Date: 20151125
  Serious: Yes (Death)
  Sender: FDA-Public Use
  Company Number: PHJP2015JP010820

PATIENT
  Age: 85 Year
  Sex: Male
  Weight: 59 kg

DRUGS (6)
  1. EXELON PATCH [Suspect]
     Active Substance: RIVASTIGMINE
     Indication: DEMENTIA ALZHEIMER^S TYPE
     Dosage: 1.9 MG/24H (PATCH 2.5 CM2, 4.5 MG RIVASTIGMINE BASE)
     Route: 062
     Dates: start: 20140514, end: 20140610
  2. EXELON PATCH [Suspect]
     Active Substance: RIVASTIGMINE
     Dosage: 4.6 MG/24H (PATCH 5 CM2, 09 MG RIVASTIGMINE BASE)
     Route: 062
     Dates: start: 20140611, end: 20140708
  3. HIRUDOID [Concomitant]
     Active Substance: GLYCOSAMINOGLYCANS
     Indication: PRODUCT USED FOR UNKNOWN INDICATION
     Dosage: UNK
     Route: 065
  4. EXELON PATCH [Suspect]
     Active Substance: RIVASTIGMINE
     Dosage: 9.5 MG/24H (PATCH 10 CM2, 18 MG RIVASTIGMINE BASE)
     Route: 062
     Dates: start: 20140809
  5. ROZEREM [Concomitant]
     Active Substance: RAMELTEON
     Indication: INSOMNIA
     Dosage: 8 MG, QD
     Route: 048
     Dates: start: 20150212
  6. EXELON PATCH [Suspect]
     Active Substance: RIVASTIGMINE
     Dosage: 6.9 MG/24H (PATCH 7.5 CM2, 13.5 MG RIVASTIGMINE BASE)
     Route: 062
     Dates: start: 20140709, end: 20140808

REACTIONS (4)
  - Loss of consciousness [Fatal]
  - Myocardial infarction [Fatal]
  - Myocardial rupture [Fatal]
  - Pain [Fatal]

NARRATIVE: CASE EVENT DATE: 20150616
